FAERS Safety Report 15837289 (Version 1)
Quarter: 2019Q1

REPORT INFORMATION
  Report Type: Spontaneous
  Country: US (occurrence: US)
  Receive Date: 20190116
  Receipt Date: 20190116
  Transmission Date: 20190417
  Serious: No
  Sender: FDA-Public Use
  Company Number: None

PATIENT

DRUGS (1)
  1. 5-FLUOROURACIL (5-FU)(19893) [Suspect]
     Active Substance: FLUOROURACIL

REACTIONS (9)
  - Vision blurred [None]
  - Head injury [None]
  - Hemiparesis [None]
  - Cerebral hypoperfusion [None]
  - Transient ischaemic attack [None]
  - Fall [None]
  - Loss of consciousness [None]
  - Facial paralysis [None]
  - Dehydration [None]
